FAERS Safety Report 5579942-X (Version None)
Quarter: 2008Q1

REPORT INFORMATION
  Report Type: 
  Country: None (occurrence: None)
  Receive Date: 20080103
  Receipt Date: 20071226
  Transmission Date: 20080703
  Serious: Yes (Other)
  Sender: FDA-Public Use
  Company Number: PHRM2007FR02646

PATIENT
  Sex: Female

DRUGS (9)
  1. LIORESAL [Suspect]
     Dosage: UNK, UNK
     Route: 048
  2. ACTOS [Suspect]
     Indication: DIABETES MELLITUS
     Route: 048
     Dates: start: 20060201
  3. AMARYL [Suspect]
     Indication: DIABETES MELLITUS
     Dosage: 6 MG/DAY
     Route: 048
  4. GLUCOPHAGE [Suspect]
     Indication: DIABETES MELLITUS
     Dosage: 3 G/DAY
     Route: 048
  5. ZOCOR [Suspect]
     Indication: DYSLIPIDAEMIA
     Route: 048
  6. ACUITEL [Suspect]
     Route: 048
  7. FLUDEX - SLOW RELEASE [Suspect]
     Route: 048
  8. MYOLASTAN [Suspect]
     Route: 048
  9. AMPECYCLAL [Suspect]
     Route: 048

REACTIONS (3)
  - FEMUR FRACTURE [None]
  - FRACTURE DELAYED UNION [None]
  - PATHOLOGICAL FRACTURE [None]
